FAERS Safety Report 7092235-7 (Version None)
Quarter: 2010Q4

REPORT INFORMATION
  Report Type: 
  Country: None (occurrence: None)
  Receive Date: 20101109
  Receipt Date: 20101101
  Transmission Date: 20110411
  Serious: Yes (Hospitalization)
  Sender: FDA-Public Use
  Company Number: PH-ABBOTT-10P-128-0682537-00

PATIENT
  Age: 20 Year
  Sex: Male
  Weight: 55 kg

DRUGS (5)
  1. VALPROIC ACID [Suspect]
     Indication: CONVULSION
     Route: 048
  2. ZONEGRAN [Interacting]
     Indication: CONVULSION
     Route: 048
     Dates: start: 20100817, end: 20100823
  3. ZONEGRAN [Interacting]
     Route: 048
     Dates: start: 20100824, end: 20100827
  4. PHENOBARBITAL [Interacting]
     Indication: CONVULSION
  5. LAMOTRIGINE [Concomitant]
     Indication: CONVULSION
     Route: 048
     Dates: start: 20100701, end: 20100817

REACTIONS (6)
  - CONVULSION [None]
  - DECREASED APPETITE [None]
  - DRUG INTERACTION [None]
  - MALAISE [None]
  - PYREXIA [None]
  - VIRAL INFECTION [None]
